FAERS Safety Report 18633502 (Version 1)
Quarter: 2020Q4

REPORT INFORMATION
  Report Type: Spontaneous
  Country: CA (occurrence: CA)
  Receive Date: 20201218
  Receipt Date: 20201218
  Transmission Date: 20210114
  Serious: Yes (Other)
  Sender: FDA-Public Use
  Company Number: CA-PFIZER INC-2020251718

PATIENT
  Age: 42 Year
  Sex: Male
  Weight: 84 kg

DRUGS (14)
  1. ZIRABEV [Suspect]
     Active Substance: BEVACIZUMAB-BVZR
     Dosage: 1400 MG, EVERY 3 WEEKS
     Route: 042
     Dates: start: 20200714
  2. ZIRABEV [Suspect]
     Active Substance: BEVACIZUMAB-BVZR
     Dosage: 1400 MG, EVERY 3 WEEKS
     Route: 042
     Dates: start: 20200804
  3. ZIRABEV [Suspect]
     Active Substance: BEVACIZUMAB-BVZR
     Indication: GLIOBLASTOMA
     Dosage: 1400 MG, EVERY 3 WEEKS
     Route: 042
     Dates: start: 20200714, end: 20200714
  4. ZIRABEV [Suspect]
     Active Substance: BEVACIZUMAB-BVZR
     Dosage: 1400 MG, EVERY 3 WEEKS
     Route: 042
     Dates: start: 20200714, end: 20200714
  5. ZIRABEV [Suspect]
     Active Substance: BEVACIZUMAB-BVZR
     Dosage: 1400 MG, EVERY 3 WEEKS
     Route: 042
     Dates: start: 20200825
  6. ZIRABEV [Suspect]
     Active Substance: BEVACIZUMAB-BVZR
     Dosage: 1400 MG, EVERY 3 WEEKS
     Route: 042
     Dates: start: 20201210
  7. ZIRABEV [Suspect]
     Active Substance: BEVACIZUMAB-BVZR
     Dosage: 1400 MG, EVERY 3 WEEKS
     Route: 042
     Dates: start: 20200714
  8. ZIRABEV [Suspect]
     Active Substance: BEVACIZUMAB-BVZR
     Dosage: 1400 MG, EVERY 3 WEEKS
     Route: 042
     Dates: start: 20200915
  9. ZIRABEV [Suspect]
     Active Substance: BEVACIZUMAB-BVZR
     Dosage: 1400 MG, EVERY 3 WEEKS
     Route: 042
     Dates: start: 20200915
  10. ZIRABEV [Suspect]
     Active Substance: BEVACIZUMAB-BVZR
     Dosage: 1400 MG, EVERY 3 WEEKS
     Route: 042
     Dates: start: 20201117
  11. ZIRABEV [Suspect]
     Active Substance: BEVACIZUMAB-BVZR
     Dosage: 1400 MG, EVERY 3 WEEKS
     Route: 042
     Dates: start: 20201210
  12. DEXAMETHASONE. [Concomitant]
     Active Substance: DEXAMETHASONE
     Dosage: UNK
  13. ZIRABEV [Suspect]
     Active Substance: BEVACIZUMAB-BVZR
     Dosage: 1400 MG, EVERY 3 WEEKS
     Route: 042
     Dates: start: 20200825
  14. LOMUSTINE. [Concomitant]
     Active Substance: LOMUSTINE
     Dosage: UNK

REACTIONS (14)
  - Body temperature decreased [Unknown]
  - Body temperature increased [Unknown]
  - Red blood cell count decreased [Unknown]
  - Red cell distribution width increased [Unknown]
  - Granulocyte count increased [Unknown]
  - Blood pressure fluctuation [Unknown]
  - Weight increased [Unknown]
  - Product use issue [Unknown]
  - Blood pressure diastolic increased [Unknown]
  - Mean cell haemoglobin increased [Unknown]
  - Seizure [Recovered/Resolved]
  - Heart rate decreased [Unknown]
  - Off label use [Unknown]
  - Platelet count decreased [Unknown]

NARRATIVE: CASE EVENT DATE: 2020
